FAERS Safety Report 14081312 (Version 1)
Quarter: 2017Q4

REPORT INFORMATION
  Report Type: Spontaneous
  Country: US (occurrence: None)
  Receive Date: 20171012
  Receipt Date: 20171012
  Transmission Date: 20180321
  Serious: No
  Sender: FDA-Public Use
  Company Number: None

PATIENT
  Sex: Female

DRUGS (4)
  1. METHOCARBAMAL [Concomitant]
  2. PHENTERMINE. [Concomitant]
     Active Substance: PHENTERMINE
  3. PREDNISONE. [Concomitant]
     Active Substance: PREDNISONE
  4. STELARA [Suspect]
     Active Substance: USTEKINUMAB
     Indication: PSORIATIC ARTHROPATHY
     Dosage: 45 MG EVERY 12 WEEKS SUBQ
     Route: 058
     Dates: start: 20170920, end: 20171011

REACTIONS (2)
  - Exposure during pregnancy [None]
  - Pregnancy [None]
